FAERS Safety Report 16973949 (Version 3)
Quarter: 2025Q4

REPORT INFORMATION
  Report Type: Spontaneous
  Country: EU (occurrence: EU)
  Receive Date: 20191030
  Receipt Date: 20251205
  Transmission Date: 20260118
  Serious: Yes (Hospitalization, Other)
  Sender: AUROBINDO
  Company Number: EU-AUROBINDO-AUR-APL-2019-070294

PATIENT
  Age: 74 Year
  Sex: Female

DRUGS (12)
  1. FLUOXETINE [Interacting]
     Active Substance: FLUOXETINE HYDROCHLORIDE
     Indication: Depression
     Dosage: 20 MILLIGRAM, ONCE A DAY
     Route: 065
     Dates: start: 201403
  2. LEVETIRACETAM [Suspect]
     Active Substance: LEVETIRACETAM
     Indication: Product used for unknown indication
     Dosage: 500 MILLIGRAM, TWO TIMES A DAY
     Route: 065
     Dates: start: 201706, end: 201708
  3. QUETIAPINE [Suspect]
     Active Substance: QUETIAPINE
     Indication: Deafness
     Dosage: 25 MILLIGRAM, ONCE A DAY
     Route: 065
  4. QUETIAPINE [Suspect]
     Active Substance: QUETIAPINE
     Indication: Hallucination
  5. RISPERIDONE [Interacting]
     Active Substance: RISPERIDONE
     Indication: Product used for unknown indication
     Dosage: UNK
     Route: 065
  6. FLUPENTIXOL\MELITRACEN [Suspect]
     Active Substance: FLUPENTIXOL\MELITRACEN
     Indication: Product used for unknown indication
     Dosage: 10/0.5 MG, ONCE A DAY (QD)
     Route: 065
  7. AMIODARONEad [Concomitant]
     Indication: Product used for unknown indication
     Dosage: 200 MILLIGRAM (0-1-0 EXCEPT TH AND SUN)
     Route: 065
  8. LOSARTAN + HIDROCLOROTIAZIDAad [Concomitant]
     Indication: Product used for unknown indication
     Dosage: UNK, 4 DAYS, QD
     Route: 065
  9. BISOPROLOLad [Concomitant]
     Indication: Product used for unknown indication
     Dosage: 2.5 MILLIGRAM (1-1/2-0)
     Route: 065
  10. PARACETAMOLad [Concomitant]
     Indication: Product used for unknown indication
     Dosage: 1 GRAM, 3 TIMES A DAY
     Route: 065
     Dates: start: 20170418
  11. Amlodipinead [Concomitant]
     Indication: Product used for unknown indication
     Dosage: 5 MILLIGRAM, ONCE A DAY (QD)
     Route: 065
     Dates: start: 20170620
  12. PRAVASTATINad [Concomitant]
     Indication: Product used for unknown indication
     Dosage: 20 MILLIGRAM, FOUR TIMES/DAY
     Route: 065
     Dates: start: 20170426

REACTIONS (13)
  - Oedema [Unknown]
  - Suicidal ideation [Unknown]
  - Tinnitus [Unknown]
  - Hyperhidrosis [Unknown]
  - Hyperthermia [Unknown]
  - Serotonin syndrome [Unknown]
  - Sudden hearing loss [Unknown]
  - Oliguria [Unknown]
  - Weight increased [Unknown]
  - Hallucination [Unknown]
  - Sleep disorder [Unknown]
  - Hallucination, auditory [Unknown]
  - Drug interaction [Unknown]
